FAERS Safety Report 19005577 (Version 4)
Quarter: 2021Q4

REPORT INFORMATION
  Report Type: Spontaneous
  Country: IT (occurrence: IT)
  Receive Date: 20210313
  Receipt Date: 20211230
  Transmission Date: 20220303
  Serious: Yes (Hospitalization)
  Sender: FDA-Public Use
  Company Number: NVSC2020IT060415

PATIENT
  Age: 82 Year
  Sex: Female
  Weight: 95 kg

DRUGS (52)
  1. FEMARA [Suspect]
     Active Substance: LETROZOLE
     Indication: Breast cancer
     Dosage: 2.5 MG, QD (MOST RECENT DOSE PRIOR TO THE EVENT: 07/DEC/2017, 09/NOV/2018)
     Route: 048
     Dates: start: 20170616
  2. FEMARA [Suspect]
     Active Substance: LETROZOLE
     Indication: HER2 positive breast cancer
     Dosage: 2.5 MG, QD
     Route: 048
     Dates: start: 20171207
  3. FEMARA [Suspect]
     Active Substance: LETROZOLE
     Dosage: 2.5 MG, QD
     Route: 048
     Dates: start: 20181109
  4. EXEMESTANE [Suspect]
     Active Substance: EXEMESTANE
     Indication: Breast cancer
     Dosage: 25 MG, QD
     Route: 048
     Dates: start: 20171207, end: 20180604
  5. EPIRUBICIN [Suspect]
     Active Substance: EPIRUBICIN
     Indication: HER2 positive breast cancer
     Dosage: 48 MG, QW, (MOST RECENT DOSE : 08 AUG 2019)
     Route: 042
     Dates: start: 20190622
  6. PACLITAXEL [Suspect]
     Active Substance: PACLITAXEL
     Indication: HER2 positive breast cancer
     Dosage: 160 MG, QW, (LAST DOSE 02 JUN 2017)
     Route: 042
     Dates: start: 20170407
  7. ADO-TRASTUZUMAB EMTANSINE [Suspect]
     Active Substance: ADO-TRASTUZUMAB EMTANSINE
     Indication: Breast cancer
     Dosage: 324 MG, TIW, (LAST DOSE 29/AUG/2018)
     Route: 042
     Dates: start: 20180606, end: 20180829
  8. ADO-TRASTUZUMAB EMTANSINE [Suspect]
     Active Substance: ADO-TRASTUZUMAB EMTANSINE
     Indication: HER2 positive breast cancer
  9. PERTUZUMAB [Suspect]
     Active Substance: PERTUZUMAB
     Indication: Breast cancer
     Dosage: 840 MG, TIW (MOST RECENT DOSE PRIOR TO EVENT: 28 APR 2017)
     Route: 042
     Dates: start: 20170407, end: 20170407
  10. PERTUZUMAB [Suspect]
     Active Substance: PERTUZUMAB
     Indication: HER2 positive breast cancer
     Dosage: 420 MG, TIW MOST RECENT DOSE PRIOR TO THE EVENT: 10/MAY/2018
     Route: 042
     Dates: start: 20170428
  11. ELLENCE [Suspect]
     Active Substance: EPIRUBICIN HYDROCHLORIDE
     Indication: Breast cancer
     Dosage: 48 MG, QW ((MOST RECENT DOSE: 08 AUG 2019)
     Route: 042
     Dates: start: 20190622
  12. TRASTUZUMAB [Suspect]
     Active Substance: TRASTUZUMAB
     Indication: Breast cancer
     Dosage: 760 MG, TIW (MOST RECENT DOSE PRIOR TO THE EVENT:14 FEB 2019)
     Route: 041
     Dates: start: 20170407, end: 20170407
  13. TRASTUZUMAB [Suspect]
     Active Substance: TRASTUZUMAB
     Dosage: 564 MG, TIW
     Route: 041
     Dates: start: 20170428, end: 20170519
  14. TRASTUZUMAB [Suspect]
     Active Substance: TRASTUZUMAB
     Dosage: 564 MG, TIW
     Route: 041
     Dates: start: 20170519, end: 20180510
  15. TRASTUZUMAB [Suspect]
     Active Substance: TRASTUZUMAB
     Dosage: 760 MG, TIW
     Route: 041
     Dates: start: 20181120
  16. TRASTUZUMAB [Suspect]
     Active Substance: TRASTUZUMAB
     Dosage: 600 MG, TIW (MOST RECENT DOSE PRIOR TO THE EVENT:14 FEB 2019)
     Route: 041
     Dates: start: 20181120
  17. TRASTUZUMAB [Suspect]
     Active Substance: TRASTUZUMAB
     Dosage: 528 MG, TIW (TRASTUZUMAB BIOSIMILAR)
     Route: 041
     Dates: start: 20190307, end: 20190509
  18. DEXAMETHASONE [Concomitant]
     Active Substance: DEXAMETHASONE
     Indication: Product used for unknown indication
     Dosage: UNK, TIW
     Route: 042
     Dates: start: 20170407, end: 20190808
  19. DEXAMETHASONE [Concomitant]
     Active Substance: DEXAMETHASONE
     Dosage: 8 MG
     Route: 042
     Dates: start: 20171116, end: 20171116
  20. ALPRAZOLAM [Concomitant]
     Active Substance: ALPRAZOLAM
     Indication: Anxiety
     Dosage: 0.13 UG
     Route: 065
     Dates: start: 20190530, end: 20190913
  21. DULOXETINE [Concomitant]
     Active Substance: DULOXETINE
     Indication: Product used for unknown indication
     Dosage: 12.5 MG, QD, (ONGOING = NOT CHECKED)
     Route: 065
     Dates: end: 20190913
  22. ALLOPURINOL [Concomitant]
     Active Substance: ALLOPURINOL
     Indication: Product used for unknown indication
     Dosage: 300 MG
     Route: 065
     Dates: end: 20190913
  23. ENOXAPARIN [Concomitant]
     Active Substance: ENOXAPARIN
     Indication: Product used for unknown indication
     Dosage: 4000 IU, QD
     Route: 065
     Dates: start: 20190613, end: 20190913
  24. PREDNISONE [Concomitant]
     Active Substance: PREDNISONE
     Indication: Asthenia
     Dosage: 100 MG, QD
     Route: 048
     Dates: start: 20170406, end: 20170519
  25. PREDNISONE [Concomitant]
     Active Substance: PREDNISONE
     Dosage: 25 MG, QD
     Route: 065
     Dates: start: 20190530, end: 20190913
  26. ACETAMINOPHEN [Concomitant]
     Active Substance: ACETAMINOPHEN
     Indication: Back pain
     Dosage: UNK, ONGOING = NOT CHECKED
     Route: 048
     Dates: start: 20170825, end: 20190913
  27. ACETAMINOPHEN [Concomitant]
     Active Substance: ACETAMINOPHEN
     Dosage: 500 MG, TIW
     Route: 048
     Dates: start: 20170407, end: 20180829
  28. NORVASC [Concomitant]
     Active Substance: AMLODIPINE BESYLATE
     Indication: Product used for unknown indication
     Dosage: 5 MG, (ONGOING = NOT CHECKED)
     Route: 065
     Dates: end: 20190913
  29. HYDROCHLOROTHIAZIDE [Concomitant]
     Active Substance: HYDROCHLOROTHIAZIDE
     Indication: Product used for unknown indication
     Dosage: 12.5 MG
     Route: 065
     Dates: end: 20190913
  30. TELMISARTAN [Concomitant]
     Active Substance: TELMISARTAN
     Indication: Product used for unknown indication
     Dosage: 80 MG
     Route: 065
     Dates: end: 20190913
  31. RANITIDINE [Concomitant]
     Active Substance: RANITIDINE
     Indication: Product used for unknown indication
     Dosage: 150 MG, QD
     Route: 065
     Dates: start: 20190530, end: 20190913
  32. PANTOPRAZOLE [Concomitant]
     Active Substance: PANTOPRAZOLE
     Indication: Gastritis
     Dosage: 80 MG, QD
     Route: 048
     Dates: start: 20170606, end: 20190530
  33. TRANEXAMIC ACID [Concomitant]
     Active Substance: TRANEXAMIC ACID
     Indication: Upper gastrointestinal haemorrhage
     Dosage: 500 MG
     Route: 048
     Dates: start: 20170508, end: 20170515
  34. DIAZEPAM [Concomitant]
     Active Substance: DIAZEPAM
     Indication: Anxiety
     Dosage: 10 DRP, (1/12 MILLILITRE)
     Route: 048
     Dates: start: 20170513, end: 20170515
  35. TOBRAMYCIN AND DEXAMETHASONE [Concomitant]
     Active Substance: DEXAMETHASONE\TOBRAMYCIN
     Indication: Conjunctivitis
     Dosage: 3 DRP, QD, (1/12 MILLILITRE)
     Route: 061
     Dates: start: 20170914, end: 20170919
  36. SUCRALFATE [Concomitant]
     Active Substance: SUCRALFATE
     Indication: Upper gastrointestinal haemorrhage
     Dosage: 20 G
     Route: 048
     Dates: start: 20170508, end: 20170529
  37. METHYLPREDNISOLONE [Concomitant]
     Active Substance: METHYLPREDNISOLONE
     Indication: Arthralgia
     Dosage: 16 MG, QD
     Route: 048
     Dates: start: 20171116, end: 20171207
  38. PANTOPRAZOLE SODIUM [Concomitant]
     Active Substance: PANTOPRAZOLE SODIUM
     Indication: Product used for unknown indication
     Dosage: UNK
     Route: 042
     Dates: start: 20170530, end: 20170601
  39. LANSOPRAZOLE [Concomitant]
     Active Substance: LANSOPRAZOLE
     Indication: Upper gastrointestinal haemorrhage
     Dosage: 30 MG, QD
     Route: 048
     Dates: start: 20170513, end: 20170529
  40. OMEPRAZOLE [Concomitant]
     Active Substance: OMEPRAZOLE
     Indication: Upper gastrointestinal haemorrhage
     Dosage: 40 MG
     Route: 042
     Dates: start: 20170508, end: 20170513
  41. LOPERAMIDE [Concomitant]
     Active Substance: LOPERAMIDE
     Indication: Diarrhoea
     Dosage: 2 MG
     Route: 048
     Dates: start: 20170513, end: 20170526
  42. LOPERAMIDE [Concomitant]
     Active Substance: LOPERAMIDE
     Dosage: 4 MG, QD
     Route: 048
     Dates: start: 20170504, end: 20170504
  43. PLAVIX [Concomitant]
     Active Substance: CLOPIDOGREL BISULFATE
     Indication: Product used for unknown indication
     Dosage: 75 MG
     Route: 048
     Dates: end: 20170508
  44. ONDANSETRON [Concomitant]
     Active Substance: ONDANSETRON
     Indication: Nausea
     Dosage: 8 MG
     Route: 042
     Dates: start: 20190622, end: 20190704
  45. CERNEVIT [Concomitant]
     Active Substance: VITAMINS
     Indication: Product used for unknown indication
     Dosage: 100 ML
     Route: 042
     Dates: start: 20170821, end: 20170821
  46. ACETAMINOPHEN\CODEINE PHOSPHATE [Concomitant]
     Active Substance: ACETAMINOPHEN\CODEINE PHOSPHATE
     Indication: Arthralgia
     Dosage: 80 MG, QD
     Route: 048
     Dates: start: 20171116, end: 20171206
  47. SODIUM ALGINATE [Concomitant]
     Active Substance: SODIUM ALGINATE
     Indication: Gastritis
     Dosage: 767 MG, QD
     Route: 048
     Dates: start: 20170606, end: 20170616
  48. POTASSIUM [Concomitant]
     Active Substance: POTASSIUM
     Indication: Diarrhoea
     Dosage: 600 MG
     Route: 048
     Dates: start: 20190709, end: 20190712
  49. AMOXICILLIN [Concomitant]
     Active Substance: AMOXICILLIN
     Indication: Product used for unknown indication
     Dosage: 1 G
     Route: 048
     Dates: start: 20190725, end: 20190801
  50. KCL [Concomitant]
     Active Substance: POTASSIUM CHLORIDE
     Indication: Product used for unknown indication
     Dosage: 600 MG, QD
     Route: 048
     Dates: start: 20170515, end: 20170526
  51. HYALURONIC ACID [Concomitant]
     Active Substance: HYALURONIC ACID
     Indication: Product used for unknown indication
     Dosage: UNK
     Route: 061
     Dates: start: 20171005, end: 20171207
  52. CLORFENAMINA MALEATO [Concomitant]
     Indication: Product used for unknown indication
     Dosage: 10 MG, TIW
     Route: 030
     Dates: start: 20170407, end: 20190509

REACTIONS (1)
  - Pain [Recovered/Resolved]

NARRATIVE: CASE EVENT DATE: 20190902
